FAERS Safety Report 15533761 (Version 3)
Quarter: 2018Q4

REPORT INFORMATION
  Report Type: Spontaneous
  Country: JP (occurrence: JP)
  Receive Date: 20181019
  Receipt Date: 20181029
  Transmission Date: 20190205
  Serious: Yes (Hospitalization, Other)
  Sender: FDA-Public Use
  Company Number: JP-LUNDBECK-DKLU2055082

PATIENT
  Age: 2 Year
  Sex: Female

DRUGS (2)
  1. SABRIL [Suspect]
     Active Substance: VIGABATRIN
     Indication: PRODUCT USED FOR UNKNOWN INDICATION
     Route: 048
     Dates: start: 201809
  2. SABRIL [Suspect]
     Active Substance: VIGABATRIN
     Dosage: 70 PERCENT OF ORIGINAL PRESCRIBED DOSE
     Route: 065
     Dates: start: 201809

REACTIONS (4)
  - Condition aggravated [Recovering/Resolving]
  - Vomiting [Unknown]
  - Feeding disorder [Unknown]
  - Epilepsy [Recovering/Resolving]
